FAERS Safety Report 10650042 (Version 2)
Quarter: 2014Q4

REPORT INFORMATION
  Report Type: Report from Study
  Country: US (occurrence: US)
  Receive Date: 20141212
  Receipt Date: 20141219
  Transmission Date: 20150529
  Serious: Yes (Death, Life-Threatening, Hospitalization, Other)
  Sender: FDA-Public Use
  Company Number: US-009507513-1412USA004921

PATIENT
  Age: 54 Year
  Sex: Male
  Weight: 112 kg

DRUGS (4)
  1. RECOMBINANT HUMAN INTERLEUKIN-2 (125ALA) [Suspect]
     Active Substance: ALDESLEUKIN
     Indication: METASTATIC MALIGNANT MELANOMA
     Dosage: 68 MILLION IU X 10:14 ORDERED DOSES, Q8H
     Route: 042
     Dates: start: 20141201, end: 20141205
  2. BLINDED FOSAPREPITANT DIMEGLUMINE [Suspect]
     Active Substance: FOSAPREPITANT DIMEGLUMINE
     Dosage: UNK
     Route: 042
     Dates: start: 20141203, end: 20141203
  3. BLINDED FOSAPREPITANT DIMEGLUMINE [Suspect]
     Active Substance: FOSAPREPITANT DIMEGLUMINE
     Indication: PROPHYLAXIS OF NAUSEA AND VOMITING
     Dosage: UNK
     Route: 042
     Dates: start: 20141201, end: 20141201
  4. AMIODARONE [Concomitant]
     Active Substance: AMIODARONE
     Indication: EXTRASYSTOLES
     Dosage: 100 MG (DRIP), QD
     Dates: start: 2014, end: 2014

REACTIONS (5)
  - Blood creatinine increased [Fatal]
  - Pleural effusion [Fatal]
  - Cardiac arrest [Fatal]
  - Myoclonus [Fatal]
  - Brain injury [Fatal]

NARRATIVE: CASE EVENT DATE: 20141205
